FAERS Safety Report 19951755 (Version 1)
Quarter: 2021Q4

REPORT INFORMATION
  Report Type: Report from Study
  Country: US (occurrence: US)
  Receive Date: 20211014
  Receipt Date: 20211014
  Transmission Date: 20220303
  Serious: Yes (Other)
  Sender: FDA-Public Use
  Company Number: US-MERCK HEALTHCARE KGAA-9105392

PATIENT
  Age: 72 Year
  Sex: Female

DRUGS (3)
  1. REBIF [Suspect]
     Active Substance: INTERFERON BETA-1A
     Indication: Multiple sclerosis
     Route: 058
     Dates: start: 2002
  2. REBIF [Suspect]
     Active Substance: INTERFERON BETA-1A
     Route: 058
     Dates: start: 20110929
  3. ASPIRIN [Concomitant]
     Active Substance: ASPIRIN
     Indication: Product used for unknown indication

REACTIONS (13)
  - Carpal tunnel syndrome [Unknown]
  - Rotator cuff repair [Unknown]
  - Foot operation [Unknown]
  - Pollakiuria [Recovering/Resolving]
  - Injection site erythema [Unknown]
  - Urinary incontinence [Unknown]
  - Balance disorder [Unknown]
  - Gait disturbance [Unknown]
  - Dysarthria [Unknown]
  - Fall [Unknown]
  - Dizziness [Unknown]
  - Haematuria [Recovered/Resolved]
  - Product dose omission issue [Recovered/Resolved]

NARRATIVE: CASE EVENT DATE: 20190101
